FAERS Safety Report 14780737 (Version 4)
Quarter: 2018Q2

REPORT INFORMATION
  Report Type: Report from Study
  Country: US (occurrence: US)
  Receive Date: 20180419
  Receipt Date: 20180522
  Transmission Date: 20180711
  Serious: Yes (Hospitalization, Other)
  Sender: FDA-Public Use
  Company Number: US-EISAI MEDICAL RESEARCH-EC-2018-038131

PATIENT
  Age: 67 Year
  Sex: Female
  Weight: 93.4 kg

DRUGS (17)
  1. HEPARIN [Concomitant]
     Active Substance: HEPARIN SODIUM
  2. TUMS [Concomitant]
     Active Substance: CALCIUM CARBONATE
  3. LENVATINIB [Suspect]
     Active Substance: LENVATINIB
     Indication: OVARIAN CANCER
     Route: 048
     Dates: start: 20180207, end: 20180416
  4. CALCIUM CARBONATE. [Concomitant]
     Active Substance: CALCIUM CARBONATE
  5. MULTIVITAMIN [Concomitant]
     Active Substance: VITAMINS
  6. BENADRYL [Concomitant]
     Active Substance: DIPHENHYDRAMINE HYDROCHLORIDE
  7. ACETAMINOPHEN. [Concomitant]
     Active Substance: ACETAMINOPHEN
  8. VALSARTAN. [Concomitant]
     Active Substance: VALSARTAN
  9. IMODIUM [Concomitant]
     Active Substance: LOPERAMIDE HYDROCHLORIDE
  10. DEXAMETHASONE. [Concomitant]
     Active Substance: DEXAMETHASONE
  11. PACLITAXEL. [Suspect]
     Active Substance: PACLITAXEL
     Indication: OVARIAN CANCER
     Route: 041
     Dates: start: 20180207, end: 20180411
  12. AMLODIPINE [Concomitant]
     Active Substance: AMLODIPINE BESYLATE
  13. PEPCID [Concomitant]
     Active Substance: FAMOTIDINE
  14. CETIRIZINE [Concomitant]
     Active Substance: CETIRIZINE HYDROCHLORIDE
  15. NAPROXEN. [Concomitant]
     Active Substance: NAPROXEN
  16. VITAMIN D [Concomitant]
     Active Substance: CHOLECALCIFEROL
  17. LEVOTHYROXINE. [Concomitant]
     Active Substance: LEVOTHYROXINE

REACTIONS (1)
  - Clostridium difficile infection [Recovering/Resolving]

NARRATIVE: CASE EVENT DATE: 20180417
